FAERS Safety Report 7375909-X (Version None)
Quarter: 2011Q1

REPORT INFORMATION
  Report Type: 
  Country: None (occurrence: None)
  Receive Date: 20110325
  Receipt Date: 20110317
  Transmission Date: 20110831
  Serious: Yes (Other)
  Sender: FDA-Public Use
  Company Number: B0707008A

PATIENT
  Age: 62 Year
  Sex: Female

DRUGS (4)
  1. AVANDAMET [Suspect]
     Route: 048
     Dates: start: 20050101, end: 20110201
  2. ATACAND [Concomitant]
     Indication: HYPERTENSION
     Route: 048
  3. LANTUS [Concomitant]
     Dates: start: 20050101
  4. RIVOTRIL [Concomitant]
     Indication: NEUROPATHY PERIPHERAL
     Route: 048

REACTIONS (6)
  - FRACTURED COCCYX [None]
  - BONE DENSITY DECREASED [None]
  - URINARY TRACT INFECTION [None]
  - BONE PAIN [None]
  - PAIN IN EXTREMITY [None]
  - MUSCULOSKELETAL PAIN [None]
